FAERS Safety Report 22146547 (Version 2)
Quarter: 2023Q2

REPORT INFORMATION
  Report Type: Spontaneous
  Country: US (occurrence: US)
  Receive Date: 20230328
  Receipt Date: 20230405
  Transmission Date: 20230722
  Serious: No
  Sender: FDA-Public Use
  Company Number: US-TORRENT-00012584

PATIENT
  Age: 80 Year
  Sex: Female

DRUGS (1)
  1. ISOSORBIDE MONONITRATE [Suspect]
     Active Substance: ISOSORBIDE MONONITRATE
     Indication: Angina pectoris
     Dosage: BOTTLE COUNT: 100 TABLETS, GPIN NUMBER: 32100025007540, PRESCRIPTION NUMBER: 7164840
     Route: 065

REACTIONS (1)
  - Product residue present [Unknown]
